FAERS Safety Report 13701446 (Version 1)
Quarter: 2017Q2

REPORT INFORMATION
  Report Type: Spontaneous
  Country: US (occurrence: US)
  Receive Date: 20170628
  Receipt Date: 20170628
  Transmission Date: 20170830
  Serious: Yes (Other)
  Sender: FDA-Public Use
  Company Number: None

PATIENT
  Age: 78 Year
  Sex: Female
  Weight: 48.15 kg

DRUGS (12)
  1. LOSARTAN. [Concomitant]
     Active Substance: LOSARTAN
  2. VITAMIN D3 [Concomitant]
     Active Substance: CHOLECALCIFEROL
  3. SIMVASTATIN. [Concomitant]
     Active Substance: SIMVASTATIN
  4. LYRICA [Concomitant]
     Active Substance: PREGABALIN
  5. LYRICA [Suspect]
     Active Substance: PREGABALIN
     Indication: NEUROPATHY PERIPHERAL
     Dosage: ?          OTHER STRENGTH:MG;QUANTITY:2 CAPSULE(S);?
     Route: 048
     Dates: start: 20170521, end: 20170620
  6. OMEPRAZOLE. [Concomitant]
     Active Substance: OMEPRAZOLE
  7. LEVETIRACETAM. [Concomitant]
     Active Substance: LEVETIRACETAM
  8. L-THYROXINE [Concomitant]
     Active Substance: LEVOTHYROXINE
  9. PACEMAKER [Concomitant]
  10. DULOXETINE HYDROCHLORIDE. [Suspect]
     Active Substance: DULOXETINE HYDROCHLORIDE
     Indication: NEURALGIA
     Dosage: ?          OTHER STRENGTH:MG;QUANTITY:1 CAPSULE(S);?
     Route: 048
     Dates: start: 20170620, end: 20170621
  11. KEPPRA [Concomitant]
     Active Substance: LEVETIRACETAM
  12. FISH OIL [Concomitant]
     Active Substance: FISH OIL

REACTIONS (9)
  - Feeling abnormal [None]
  - Somnolence [None]
  - Disturbance in attention [None]
  - Mental disorder [None]
  - Nausea [None]
  - Decreased appetite [None]
  - Dizziness [None]
  - Retching [None]
  - Abulia [None]

NARRATIVE: CASE EVENT DATE: 20170621
